APPROVED DRUG PRODUCT: ERTAPENEM SODIUM
Active Ingredient: ERTAPENEM SODIUM
Strength: EQ 1GM BASE/VIAL
Dosage Form/Route: INJECTABLE;INTRAMUSCULAR, INTRAVENOUS
Application: A208790 | Product #001 | TE Code: AP
Applicant: ACS DOBFAR SPA
Approved: Apr 16, 2018 | RLD: No | RS: No | Type: RX